FAERS Safety Report 24135802 (Version 1)
Quarter: 2024Q3

REPORT INFORMATION
  Report Type: Spontaneous
  Country: PL (occurrence: PL)
  Receive Date: 20240725
  Receipt Date: 20240725
  Transmission Date: 20241017
  Serious: Yes (Hospitalization)
  Sender: BAUSCH AND LOMB
  Company Number: None

PATIENT
  Age: 30 Year
  Sex: Male
  Weight: 75 kg

DRUGS (3)
  1. SELEGILINE [Suspect]
     Active Substance: SELEGILINE
     Indication: Product used for unknown indication
     Dosage: NO INFORMATION ON DOSE
     Route: 048
  2. HYDROXYZINE [Suspect]
     Active Substance: HYDROXYZINE HYDROCHLORIDE
     Indication: Product used for unknown indication
     Dosage: NO INFORMATION ON DOSE
     Route: 048
  3. BACLOFEN [Suspect]
     Active Substance: BACLOFEN
     Indication: Product used for unknown indication
     Dosage: NO INFORMATION ON DOSE
     Route: 048

REACTIONS (4)
  - Drug dependence [Unknown]
  - Toxicity to various agents [Unknown]
  - Confusional state [Unknown]
  - Agitation [Unknown]

NARRATIVE: CASE EVENT DATE: 20201101
